FAERS Safety Report 16190536 (Version 1)
Quarter: 2019Q2

REPORT INFORMATION
  Report Type: Spontaneous
  Country: FR (occurrence: FR)
  Receive Date: 20190412
  Receipt Date: 20190412
  Transmission Date: 20190711
  Serious: Yes (Hospitalization)
  Sender: FDA-Public Use
  Company Number: FR-PFIZER INC-2019150513

PATIENT
  Age: 19 Year
  Sex: Female
  Weight: 44 kg

DRUGS (4)
  1. FLAGYL [Suspect]
     Active Substance: METRONIDAZOLE\METRONIDAZOLE HYDROCHLORIDE
     Indication: TOXICITY TO VARIOUS AGENTS
     Dosage: 14 DF, SINGLE
     Route: 048
     Dates: start: 20180405, end: 20180405
  2. PARACETAMOL [Suspect]
     Active Substance: ACETAMINOPHEN
     Indication: TOXICITY TO VARIOUS AGENTS
     Dosage: 14 G, SINGLE
     Route: 048
     Dates: start: 20180405, end: 20180405
  3. IBUPROFEN. [Suspect]
     Active Substance: IBUPROFEN
     Indication: TOXICITY TO VARIOUS AGENTS
     Dosage: 30 DF, SINGLE
     Route: 048
     Dates: start: 20180405, end: 20180405
  4. DESLORATADINE. [Suspect]
     Active Substance: DESLORATADINE
     Indication: TOXICITY TO VARIOUS AGENTS
     Dosage: 16 DF, SINGLE
     Route: 048
     Dates: start: 20180405, end: 20180405

REACTIONS (2)
  - Hepatocellular injury [Recovered/Resolved]
  - Product use in unapproved indication [Unknown]

NARRATIVE: CASE EVENT DATE: 20180405
